FAERS Safety Report 4709204-1 (Version None)
Quarter: 2005Q3

REPORT INFORMATION
  Report Type: 
  Country: None (occurrence: None)
  Receive Date: 20050708
  Receipt Date: 20050701
  Transmission Date: 20060218
  Serious: Yes (Other)
  Sender: FDA-Public Use
  Company Number: US-JNJFOC-20050505289

PATIENT
  Sex: Male

DRUGS (10)
  1. VIADUR [Suspect]
     Indication: PROSTATE CANCER
     Route: 058
  2. AMBIEN [Concomitant]
  3. MULTI-VITAMIN [Concomitant]
  4. MULTI-VITAMIN [Concomitant]
  5. MULTI-VITAMIN [Concomitant]
  6. MULTI-VITAMIN [Concomitant]
  7. MULTI-VITAMIN [Concomitant]
  8. MULTI-VITAMIN [Concomitant]
  9. MULTI-VITAMIN [Concomitant]
  10. MULTI-VITAMIN [Concomitant]

REACTIONS (12)
  - AMNESIA [None]
  - ARTHRALGIA [None]
  - DECREASED APPETITE [None]
  - DYSPNOEA [None]
  - EYE PAIN [None]
  - FATIGUE [None]
  - HOT FLUSH [None]
  - INCONTINENCE [None]
  - MYALGIA [None]
  - PRURITUS GENERALISED [None]
  - VISION BLURRED [None]
  - VISUAL ACUITY REDUCED [None]
